FAERS Safety Report 9019625 (Version 2)
Quarter: 2013Q3

REPORT INFORMATION
  Report Type: Report from Study
  Country: SN (occurrence: SN)
  Receive Date: 20130118
  Receipt Date: 20130722
  Transmission Date: 20140515
  Serious: Yes (Hospitalization)
  Sender: FDA-Public Use
  Company Number: SN-ABBOTT-13P-138-1035286-00

PATIENT
  Age: 25 Year
  Sex: Female

DRUGS (3)
  1. RITONAVIR [Suspect]
     Indication: HIV INFECTION
     Route: 048
     Dates: start: 20110706
  2. PREZISTA [Concomitant]
     Indication: HIV INFECTION
     Route: 048
     Dates: start: 20110706
  3. TRUVADA [Concomitant]
     Indication: HIV INFECTION
     Route: 048
     Dates: start: 20110706

REACTIONS (1)
  - Stillbirth [Unknown]
